FAERS Safety Report 8920514 (Version 1)
Quarter: 2012Q4

REPORT INFORMATION
  Report Type: 
  Country: FR (occurrence: FR)
  Receive Date: 20121121
  Receipt Date: 20121121
  Transmission Date: 20130627
  Serious: Yes (Other)
  Sender: FDA-Public Use
  Company Number: FR-BAYER-2012-121151

PATIENT
  Sex: Female

DRUGS (1)
  1. MYCOHYDRALIN [Suspect]
     Route: 067

REACTIONS (1)
  - Vaginal haemorrhage [None]
